FAERS Safety Report 8455348-0 (Version None)
Quarter: 2012Q2

REPORT INFORMATION
  Report Type: 
  Country: None (occurrence: None)
  Receive Date: 20120621
  Receipt Date: 20120612
  Transmission Date: 20120825
  Serious: Yes (Other)
  Sender: FDA-Public Use
  Company Number: US-JNJFOC-20120507651

PATIENT
  Sex: Female

DRUGS (8)
  1. LOVASTATIN [Concomitant]
     Indication: BLOOD CHOLESTEROL INCREASED
     Dates: start: 20040101
  2. STELARA [Suspect]
     Indication: PSORIASIS
     Route: 058
     Dates: start: 20111101
  3. STELARA [Suspect]
     Route: 058
     Dates: start: 20120501
  4. STELARA [Suspect]
     Route: 058
     Dates: start: 20120101
  5. SYNTHROID [Concomitant]
     Indication: HYPOTHYROIDISM
     Dates: start: 20080101
  6. BENICAR HCT [Concomitant]
     Indication: HYPERTENSION
     Dates: start: 20090101
  7. FLUOXETINE [Concomitant]
     Indication: DEPRESSION
     Dates: start: 20110101
  8. ASPIRIN [Concomitant]
     Indication: CARDIOVASCULAR DISORDER
     Dates: start: 19900101

REACTIONS (2)
  - SQUAMOUS CELL CARCINOMA [None]
  - SEBORRHOEIC KERATOSIS [None]
